FAERS Safety Report 10184050 (Version 1)
Quarter: 2014Q2

REPORT INFORMATION
  Report Type: Spontaneous
  Country: CN (occurrence: CN)
  Receive Date: 20140520
  Receipt Date: 20140520
  Transmission Date: 20141212
  Serious: Yes (Hospitalization)
  Sender: FDA-Public Use
  Company Number: CN-GLAXOSMITHKLINE-B0994954A

PATIENT
  Age: 85 Year
  Sex: Male
  Weight: 65 kg

DRUGS (2)
  1. VENTOLIN [Suspect]
     Indication: WHEEZING
     Dosage: 1ML TWICE PER DAY
     Route: 055
     Dates: start: 20130117, end: 20130117
  2. PULMICORT [Suspect]
     Indication: WHEEZING
     Dosage: 1MG TWICE PER DAY
     Route: 055
     Dates: start: 20130117, end: 20130117

REACTIONS (7)
  - Anaphylactic shock [Recovering/Resolving]
  - Altered state of consciousness [Recovering/Resolving]
  - Chest discomfort [Recovering/Resolving]
  - Dyspepsia [Recovering/Resolving]
  - Cyanosis [Recovering/Resolving]
  - Blood pressure increased [Recovering/Resolving]
  - Aortic disorder [Recovering/Resolving]
